FAERS Safety Report 22091130 (Version 1)
Quarter: 2023Q1

REPORT INFORMATION
  Report Type: Spontaneous
  Country: US (occurrence: US)
  Receive Date: 20230314
  Receipt Date: 20230314
  Transmission Date: 20230418
  Serious: No
  Sender: FDA-Public Use
  Company Number: US-PADAGIS-2023PAD00238

PATIENT

DRUGS (6)
  1. CLOBETASOL PROPIONATE [Suspect]
     Active Substance: CLOBETASOL PROPIONATE
     Indication: Psoriasis
     Dosage: UNK
     Route: 061
  2. CLOBETASOL PROPIONATE [Suspect]
     Active Substance: CLOBETASOL PROPIONATE
     Indication: Hyperkeratosis
  3. APREMILAST [Suspect]
     Active Substance: APREMILAST
     Indication: Psoriasis
     Dosage: UNK
     Route: 065
  4. APREMILAST [Suspect]
     Active Substance: APREMILAST
     Indication: Hyperkeratosis
  5. UREA [Suspect]
     Active Substance: UREA
     Indication: Psoriasis
     Dosage: UNK
     Route: 065
  6. UREA [Suspect]
     Active Substance: UREA
     Indication: Hyperkeratosis

REACTIONS (2)
  - Therapy partial responder [Unknown]
  - Drug ineffective [Unknown]
